FAERS Safety Report 9678178 (Version 1)
Quarter: 2013Q4

REPORT INFORMATION
  Report Type: Spontaneous
  Country: US (occurrence: US)
  Receive Date: 20131108
  Receipt Date: 20131108
  Transmission Date: 20140711
  Serious: No
  Sender: FDA-Public Use
  Company Number: US-UPSHER-SMITH LABORATORIES, INC.-13000231

PATIENT
  Age: 55 Year
  Sex: Male

DRUGS (4)
  1. JANTOVEN [Suspect]
     Indication: ATRIAL FIBRILLATION
     Dosage: 5 MG M, W, F; 7.5 MG SA, SU, TU, TH
     Route: 048
     Dates: start: 20130105
  2. AMIODARONE [Concomitant]
     Dosage: 200 MG, QD
  3. DILTIAZEM [Concomitant]
     Dosage: 240 MG, QD
  4. DRONEDARONE [Concomitant]
     Dosage: 400 MG, BID

REACTIONS (1)
  - International normalised ratio decreased [Unknown]
